FAERS Safety Report 7924902 (Version 3)
Quarter: 2013Q1

REPORT INFORMATION
  Report Type: Spontaneous
  Country: AU (occurrence: AU)
  Receive Date: 20110502
  Receipt Date: 20130214
  Transmission Date: 20140127
  Serious: Yes (Other)
  Sender: FDA-Public Use
  Company Number: AU-ASTRAZENECA-2011SE23661

PATIENT
  Age: 76 Year
  Sex: Male

DRUGS (6)
  1. ZOLADEX IMPLANT [Suspect]
     Indication: PROSTATE CANCER
     Route: 058
     Dates: start: 20101101
  2. VERAPAMIL [Concomitant]
  3. LIPITOR [Concomitant]
  4. CALTRATE [Concomitant]
  5. MOBIC [Concomitant]
  6. PAIN PATCH [Concomitant]

REACTIONS (3)
  - Skin cancer [Unknown]
  - Hot flush [Not Recovered/Not Resolved]
  - Intervertebral disc protrusion [Not Recovered/Not Resolved]
